FAERS Safety Report 11781337 (Version 1)
Quarter: 2015Q4

REPORT INFORMATION
  Report Type: Spontaneous
  Country: US (occurrence: US)
  Receive Date: 20151126
  Receipt Date: 20151126
  Transmission Date: 20160305
  Serious: No
  Sender: FDA-Public Use
  Company Number: US-JNJFOC-20151113180

PATIENT
  Age: 57 Year
  Sex: Male
  Weight: 70.31 kg

DRUGS (3)
  1. ALL OTHER THERAPEUTIC PRODUCTS [Concomitant]
     Active Substance: UNSPECIFIED INGREDIENT
     Route: 065
  2. MENS ROGAINE EXTRA STRENGTH [Suspect]
     Active Substance: MINOXIDIL
     Indication: ALOPECIA
     Dosage: CAPFUL AMOUNT
     Route: 061
  3. MENS ROGAINE EXTRA STRENGTH [Suspect]
     Active Substance: MINOXIDIL
     Indication: ALOPECIA
     Dosage: A CAPFUL AMOUNT
     Route: 061

REACTIONS (4)
  - Product use issue [Unknown]
  - Overdose [Unknown]
  - Drug ineffective for unapproved indication [Unknown]
  - Dandruff [Recovered/Resolved]
